FAERS Safety Report 9923981 (Version 2)
Quarter: 2014Q1

REPORT INFORMATION
  Report Type: Spontaneous
  Country: NL (occurrence: NL)
  Receive Date: 20140225
  Receipt Date: 20140310
  Transmission Date: 20141002
  Serious: Yes (Hospitalization)
  Sender: FDA-Public Use
  Company Number: NL-B.I. PHARMACEUTICALS,INC./RIDGEFIELD-2014-BI-07771NL

PATIENT
  Age: 52 Year
  Sex: Female
  Weight: 48 kg

DRUGS (2)
  1. SPIRIVA RESPIMAT [Suspect]
     Indication: ASTHMA
     Route: 065
     Dates: start: 20140123
  2. SPIRIVA RESPIMAT [Suspect]
     Indication: CHRONIC OBSTRUCTIVE PULMONARY DISEASE

REACTIONS (1)
  - Weight decreased [Unknown]
